FAERS Safety Report 8862179 (Version 1)
Quarter: 2012Q4

REPORT INFORMATION
  Report Type: 
  Country: US (occurrence: US)
  Receive Date: 20121026
  Receipt Date: 20121026
  Transmission Date: 20130627
  Serious: No
  Sender: FDA-Public Use
  Company Number: US-TEVA-366742USA

PATIENT
  Sex: Female
  Weight: 74.91 kg

DRUGS (2)
  1. PROAIR HFA [Suspect]
     Dosage: 8-10 times day
  2. ROBITUSSIN DM [Concomitant]

REACTIONS (1)
  - Dyspnoea [Unknown]
